FAERS Safety Report 4304313-3 (Version None)
Quarter: 2004Q1

REPORT INFORMATION
  Report Type: 
  Country: None (occurrence: None)
  Receive Date: 20040225
  Receipt Date: 20040122
  Transmission Date: 20041129
  Serious: Yes (Hospitalization)
  Sender: FDA-Public Use
  Company Number: 2411512-2004-00001

PATIENT
  Sex: Male

DRUGS (2)
  1. LIQUID POLIBAR PLUS BARIUM SULFATE SUSPENSION 105 % W/V, 58% W/W [Suspect]
     Indication: X-RAY GASTROINTESTINAL TRACT
     Dosage: RECTAL ADMINISTRATION
     Route: 054
     Dates: start: 20040109
  2. LIQUID POLIBAR PLUS BARIUM SULFATE SUSPENSION 105 % W/V, 58% W/W [Suspect]
     Indication: X-RAY GASTROINTESTINAL TRACT
     Dosage: RECTAL ADMINISTRATION
     Route: 054
     Dates: start: 20040112

REACTIONS (6)
  - COLONIC OBSTRUCTION [None]
  - FAECALOMA [None]
  - GASTROINTESTINAL MOTILITY DISORDER [None]
  - INTESTINAL HYPOMOTILITY [None]
  - VOMITING [None]
  - WEIGHT DECREASED [None]
